FAERS Safety Report 7122841-2 (Version None)
Quarter: 2010Q4

REPORT INFORMATION
  Report Type: 
  Country: None (occurrence: None)
  Receive Date: 20101124
  Receipt Date: 20101025
  Transmission Date: 20110411
  Serious: Yes (Hospitalization)
  Sender: FDA-Public Use
  Company Number: DE-AMGEN-QUU426842

PATIENT

DRUGS (4)
  1. ETANERCEPT [Suspect]
     Indication: RHEUMATOID ARTHRITIS
     Dosage: 25 MG, 2 TIMES/WK
     Route: 058
     Dates: start: 20030101, end: 20100101
  2. ETANERCEPT [Suspect]
     Dosage: 25 MG, 2 TIMES/WK
     Dates: start: 20100101
  3. HEPARIN [Concomitant]
  4. MARCUMAR [Concomitant]
     Dosage: UNKNOWN

REACTIONS (2)
  - CHOLECYSTECTOMY [None]
  - CHOLELITHOTOMY [None]
